FAERS Safety Report 11335569 (Version 3)
Quarter: 2016Q1

REPORT INFORMATION
  Report Type: Spontaneous
  Country: US (occurrence: US)
  Receive Date: 20150804
  Receipt Date: 20160122
  Transmission Date: 20160525
  Serious: Yes (Other)
  Sender: FDA-Public Use
  Company Number: US-GLAXOSMITHKLINE-US2015110253

PATIENT
  Age: 55 Year
  Sex: Male

DRUGS (1)
  1. JALYN [Suspect]
     Active Substance: DUTASTERIDE\TAMSULOSIN HYDROCHLORIDE
     Indication: BENIGN PROSTATIC HYPERPLASIA
     Dosage: UNK, QD
     Route: 048
     Dates: start: 2012, end: 20150616

REACTIONS (8)
  - Loss of libido [Recovering/Resolving]
  - Parkinson^s disease [Not Recovered/Not Resolved]
  - Abnormal sensation in eye [Recovering/Resolving]
  - Adverse event [Not Recovered/Not Resolved]
  - Asthenia [Recovering/Resolving]
  - Parkinsonism [Not Recovered/Not Resolved]
  - Semen volume decreased [Recovering/Resolving]
  - Balance disorder [Recovering/Resolving]

NARRATIVE: CASE EVENT DATE: 20150101
